FAERS Safety Report 16243049 (Version 1)
Quarter: 2019Q2

REPORT INFORMATION
  Report Type: Spontaneous
  Country: US (occurrence: US)
  Receive Date: 20190425
  Receipt Date: 20190425
  Transmission Date: 20190711
  Serious: No
  Sender: FDA-Public Use
  Company Number: None

PATIENT
  Age: 2 Year
  Sex: Male

DRUGS (7)
  1. FLONASE [Concomitant]
     Active Substance: FLUTICASONE PROPIONATE
  2. FLOVENT HFA 110 [Concomitant]
  3. CREON 6000 UNITS [Concomitant]
  4. RANITIDINE 15MG/ML [Concomitant]
  5. ALBUTEROL 0.083% [Concomitant]
  6. KALYDECO [Suspect]
     Active Substance: IVACAFTOR
     Indication: CYSTIC FIBROSIS
     Route: 048
  7. CETIRIZINE 1MG/ML [Concomitant]

REACTIONS (2)
  - Secretion discharge [None]
  - Cough [None]

NARRATIVE: CASE EVENT DATE: 20190425
